FAERS Safety Report 6201863-X (Version None)
Quarter: 2009Q2

REPORT INFORMATION
  Report Type: 
  Country: None (occurrence: None)
  Receive Date: 20090520
  Receipt Date: 20090513
  Transmission Date: 20091009
  Serious: Yes (Death, Hospitalization)
  Sender: FDA-Public Use
  Company Number: 2009005522

PATIENT
  Sex: Male

DRUGS (6)
  1. TREANDA [Suspect]
     Indication: ACUTE LEUKAEMIA
     Dosage: SEE IMAGE
     Route: 042
     Dates: start: 20090310, end: 20090310
  2. TREANDA [Suspect]
     Indication: MYELODYSPLASTIC SYNDROME
     Dosage: SEE IMAGE
     Route: 042
     Dates: start: 20090310, end: 20090310
  3. TREANDA [Suspect]
     Indication: ACUTE LEUKAEMIA
     Dosage: SEE IMAGE
     Route: 042
     Dates: start: 20090311, end: 20090313
  4. TREANDA [Suspect]
     Indication: MYELODYSPLASTIC SYNDROME
     Dosage: SEE IMAGE
     Route: 042
     Dates: start: 20090311, end: 20090313
  5. TREANDA [Suspect]
     Indication: ACUTE LEUKAEMIA
     Dosage: SEE IMAGE
     Route: 042
     Dates: start: 20090314, end: 20090314
  6. TREANDA [Suspect]
     Indication: MYELODYSPLASTIC SYNDROME
     Dosage: SEE IMAGE
     Route: 042
     Dates: start: 20090314, end: 20090314

REACTIONS (11)
  - ACUTE RESPIRATORY FAILURE [None]
  - ATRIAL FIBRILLATION [None]
  - GENERAL PHYSICAL HEALTH DETERIORATION [None]
  - GLOMERULAR FILTRATION RATE [None]
  - INFECTION [None]
  - METABOLIC ACIDOSIS [None]
  - MULTI-ORGAN FAILURE [None]
  - PNEUMONIA [None]
  - PULMONARY HAEMORRHAGE [None]
  - RENAL FAILURE ACUTE [None]
  - SEPTIC SHOCK [None]
